FAERS Safety Report 19737103 (Version 1)
Quarter: 2021Q3

REPORT INFORMATION
  Report Type: Spontaneous
  Country: US (occurrence: US)
  Receive Date: 20210823
  Receipt Date: 20210823
  Transmission Date: 20211014
  Serious: Yes (Other)
  Sender: FDA-Public Use
  Company Number: US-SA-2021SA276853

PATIENT
  Age: 65 Year
  Sex: Female

DRUGS (2)
  1. MULTAQ [Suspect]
     Active Substance: DRONEDARONE
     Dosage: 400 MG, BID (DRUG STRUCTURE DOSAGE : 400 MG DRUG INTERVAL DOSAGE : BID DRUG TREATMENT DURATION: NA)
  2. DILTIAZEM ZENTIVA L.P. [Suspect]
     Active Substance: DILTIAZEM HYDROCHLORIDE
     Dosage: UNK
     Route: 042

REACTIONS (4)
  - Asthenia [Unknown]
  - Atrial fibrillation [Unknown]
  - Heart rate increased [Unknown]
  - Fatigue [Unknown]
